FAERS Safety Report 18522019 (Version 2)
Quarter: 2020Q4

REPORT INFORMATION
  Report Type: Spontaneous
  Country: US (occurrence: US)
  Receive Date: 20201119
  Receipt Date: 20201217
  Transmission Date: 20210114
  Serious: Yes (Other)
  Sender: FDA-Public Use
  Company Number: US-SUNOVION-2020SUN003391

PATIENT
  Age: 60 Year
  Sex: Female
  Weight: 94.33 kg

DRUGS (3)
  1. AMLODIPINE BESILATE [Suspect]
     Active Substance: AMLODIPINE BESYLATE
     Dosage: 5 MG
     Route: 065
     Dates: start: 20201002
  2. LATUDA [Suspect]
     Active Substance: LURASIDONE HYDROCHLORIDE
     Indication: BIPOLAR II DISORDER
     Dosage: 20 MG, QD
     Route: 048
     Dates: start: 20200911, end: 20201003
  3. AMLODIPINE BESILATE [Suspect]
     Active Substance: AMLODIPINE BESYLATE
     Indication: HYPERTENSION
     Dosage: 15 MG
     Route: 065
     Dates: end: 20201031

REACTIONS (3)
  - Oedema peripheral [Unknown]
  - Tardive dyskinesia [Recovered/Resolved]
  - Off label use [Unknown]
